FAERS Safety Report 11429097 (Version 1)
Quarter: 2015Q3

REPORT INFORMATION
  Report Type: Spontaneous
  Country: FR (occurrence: FR)
  Receive Date: 20150828
  Receipt Date: 20150828
  Transmission Date: 20151125
  Serious: Yes (Hospitalization)
  Sender: FDA-Public Use
  Company Number: FR-AMGEN-FRASP2015087509

PATIENT
  Age: 65 Year
  Sex: Female

DRUGS (3)
  1. FORSTEO [Concomitant]
     Active Substance: TERIPARATIDE
     Dosage: 1 DF, 1X/DAY
     Route: 058
     Dates: start: 201407, end: 20150607
  2. CORTANCYL [Concomitant]
     Active Substance: PREDNISONE
     Dosage: 7 MG, UNK
  3. ENBREL [Suspect]
     Active Substance: ETANERCEPT
     Indication: PRODUCT USED FOR UNKNOWN INDICATION
     Dosage: 50 MG, WEEKLY
     Route: 058
     Dates: end: 20150607

REACTIONS (5)
  - Decreased appetite [Recovered/Resolved]
  - Rales [Unknown]
  - Dyspnoea [Recovered/Resolved]
  - Anaemia [Recovered/Resolved]
  - Asthenia [Recovered/Resolved]

NARRATIVE: CASE EVENT DATE: 20150605
